FAERS Safety Report 9521010 (Version 1)
Quarter: 2013Q1

REPORT INFORMATION
  Report Type: Spontaneous
  Country: US (occurrence: None)
  Receive Date: 20130305
  Receipt Date: 20130305
  Transmission Date: 20140127
  Serious: Yes (Other)
  Sender: FDA-Public Use
  Company Number: 163-21880-12081835

PATIENT
  Age: 76 Year
  Sex: Male
  Weight: 63.5 kg

DRUGS (7)
  1. REVLIMID (LENALIDOMIDE) (15 MILLIGRAM, CAPSULES) [Suspect]
     Indication: PLASMA CELL MYELOMA
     Route: 048
     Dates: start: 20120522
  2. ZOMETA (ZOLEDRONIC ACID) [Concomitant]
  3. DOCUSATE (DOCUSATE) [Concomitant]
  4. FENTANYL (FENTANYL) [Concomitant]
  5. ASA (ACETYLSALICYLIC ACID) [Concomitant]
  6. CLARITIN (LORATADINE) [Concomitant]
  7. SENNA PLUS (SENNOSIDE A+B) [Concomitant]

REACTIONS (2)
  - Fatigue [None]
  - Parosmia [None]
